FAERS Safety Report 20617653 (Version 2)
Quarter: 2022Q1

REPORT INFORMATION
  Report Type: Report from Study
  Country: CA (occurrence: CA)
  Receive Date: 20220321
  Receipt Date: 20220325
  Transmission Date: 20220423
  Serious: Yes (Other)
  Sender: FDA-Public Use
  Company Number: CA-AstraZeneca-2022A095562

PATIENT
  Sex: Female

DRUGS (1)
  1. ENHERTU [Suspect]
     Active Substance: FAM-TRASTUZUMAB DERUXTECAN-NXKI
     Indication: HER2 positive breast cancer
     Dosage: 213 MG, ONCE EVERY 3 WK
     Route: 042
     Dates: start: 20211021

REACTIONS (3)
  - Drug intolerance [Recovered/Resolved]
  - Headache [Recovering/Resolving]
  - Malaise [Recovered/Resolved]
